FAERS Safety Report 9235057 (Version 3)
Quarter: 2014Q1

REPORT INFORMATION
  Report Type: Report from Study
  Country: US (occurrence: US)
  Receive Date: 20130416
  Receipt Date: 20140224
  Transmission Date: 20141002
  Serious: No
  Sender: FDA-Public Use
  Company Number: US-PFIZER INC-2013117535

PATIENT
  Age: 36 Year
  Sex: Female

DRUGS (8)
  1. NERATINIB [Suspect]
     Indication: BREAST CANCER METASTATIC
     Dosage: 240 MG, DAILY
     Route: 048
     Dates: start: 20130313, end: 20130319
  2. NERATINIB [Suspect]
     Dosage: 240 MG, DAILY
     Route: 048
     Dates: start: 20130321, end: 20130325
  3. TEMSIROLIMUS [Suspect]
     Indication: BREAST CANCER METASTATIC
     Dosage: 8 MG, WEEKLY
     Route: 042
     Dates: start: 20130313, end: 20130325
  4. ONDANSETRON [Concomitant]
     Dosage: UNK
     Dates: start: 20130325
  5. DIPHENHYDRAMINE [Concomitant]
     Dosage: UNK
     Dates: start: 20130313
  6. PALONOSETRON [Concomitant]
     Dosage: UNK
     Dates: start: 20130325
  7. GRANISETRON [Concomitant]
     Indication: PROPHYLAXIS OF NAUSEA AND VOMITING
     Dosage: UNK
     Route: 042
     Dates: start: 20130318, end: 20130321
  8. LIDOCAINE HYDROCHLORIDE [Concomitant]
     Dosage: UNK
     Dates: start: 20130325

REACTIONS (4)
  - Mucosal inflammation [Recovered/Resolved]
  - Fatigue [Recovered/Resolved]
  - Aspartate aminotransferase increased [Not Recovered/Not Resolved]
  - Alanine aminotransferase increased [Not Recovered/Not Resolved]
